FAERS Safety Report 8535853-9 (Version None)
Quarter: 2012Q3

REPORT INFORMATION
  Report Type: 
  Country: None (occurrence: None)
  Receive Date: 20120725
  Receipt Date: 20120716
  Transmission Date: 20120928
  Serious: Yes (Hospitalization)
  Sender: FDA-Public Use
  Company Number: CO-009507513-2012SP036049

PATIENT

DRUGS (10)
  1. CYCLOSPORINE [Concomitant]
  2. NIFEDIPINE [Concomitant]
  3. OMEPRAZOLE [Concomitant]
  4. AZATIOPRIN [Concomitant]
  5. RIBAVIRIN [Suspect]
     Dosage: 800 MG, QD
     Dates: start: 20120712
  6. SULFAMETHOXAZOLE AND TRIMETHOPRIM [Concomitant]
  7. RIBAVIRIN [Suspect]
     Indication: HEPATITIS C
     Dosage: 1000 MG, QD
     Dates: start: 20120608
  8. MAGNESIUM (UNSPECIFIED) [Concomitant]
  9. PEG-INTRON [Suspect]
     Indication: HEPATITIS C
     Dosage: 100 MICROGRAM, QD
     Dates: start: 20120608
  10. PREDNISOLONE [Concomitant]

REACTIONS (2)
  - LIVER OPERATION [None]
  - BILE DUCT STENOSIS [None]
